FAERS Safety Report 13356460 (Version 4)
Quarter: 2017Q2

REPORT INFORMATION
  Report Type: Report from Study
  Country: None (occurrence: NL)
  Receive Date: 20170321
  Receipt Date: 20170419
  Transmission Date: 20170830
  Serious: Yes (Death)
  Sender: FDA-Public Use
  Company Number: NL-ABBVIE-17P-114-1910374-00

PATIENT
  Sex: Female

DRUGS (1)
  1. DUODOPA [Suspect]
     Active Substance: CARBIDOPA\LEVODOPA
     Indication: PARKINSON^S DISEASE
     Dosage: MD UNK, CD UNK, ED 4, ND 4.4
     Route: 050
     Dates: start: 200905

REACTIONS (3)
  - Fluid intake reduced [Fatal]
  - Hypophagia [Fatal]
  - Sedation [Fatal]
